FAERS Safety Report 11083924 (Version 2)
Quarter: 2015Q2

REPORT INFORMATION
  Report Type: Spontaneous
  Country: US (occurrence: US)
  Receive Date: 20150501
  Receipt Date: 20150604
  Transmission Date: 20150821
  Serious: Yes (Hospitalization)
  Sender: FDA-Public Use
  Company Number: US-UNITED THERAPEUTICS-UNT-2015-004945

PATIENT
  Age: 47 Year
  Sex: Female
  Weight: 85.71 kg

DRUGS (4)
  1. REMODULIN [Suspect]
     Active Substance: TREPROSTINIL
     Indication: PULMONARY ARTERIAL HYPERTENSION
     Dosage: 0.0725 ?G/KG, CONTINUING
     Route: 058
     Dates: start: 20140307
  2. REMODULIN [Suspect]
     Active Substance: TREPROSTINIL
     Dosage: 0.0725 ?G/KG, CONTINUING
     Route: 041
     Dates: start: 20140307
  3. REVATIO [Concomitant]
     Active Substance: SILDENAFIL CITRATE
     Indication: PRODUCT USED FOR UNKNOWN INDICATION
  4. TRACLEER [Concomitant]
     Active Substance: BOSENTAN\BOSENTAN MONOHYDRATE
     Indication: PRODUCT USED FOR UNKNOWN INDICATION

REACTIONS (2)
  - Fluid overload [Unknown]
  - Pneumonia [Unknown]

NARRATIVE: CASE EVENT DATE: 201504
